FAERS Safety Report 6669963-8 (Version None)
Quarter: 2010Q2

REPORT INFORMATION
  Report Type: 
  Country: None (occurrence: None)
  Receive Date: 20100406
  Receipt Date: 20100128
  Transmission Date: 20101027
  Serious: No
  Sender: FDA-Public Use
  Company Number: US-ALLERGAN-1001082US

PATIENT
  Sex: Female

DRUGS (1)
  1. LATISSE [Suspect]
     Indication: GROWTH OF EYELASHES
     Dosage: 3 GTT, UNK
     Route: 061
     Dates: start: 20100118

REACTIONS (3)
  - INCORRECT DOSE ADMINISTERED [None]
  - MADAROSIS [None]
  - PRODUCT QUALITY ISSUE [None]
